FAERS Safety Report 10199244 (Version 7)
Quarter: 2015Q1

REPORT INFORMATION
  Report Type: Report from Study
  Country: US (occurrence: US)
  Receive Date: 20140527
  Receipt Date: 20150310
  Transmission Date: 20150720
  Serious: Yes (Hospitalization, Other)
  Sender: FDA-Public Use
  Company Number: US-SANOFI-AVENTIS-2013SA087478

PATIENT
  Age: 59 Year
  Sex: Female

DRUGS (6)
  1. AUBAGIO [Suspect]
     Active Substance: TERIFLUNOMIDE
     Indication: MULTIPLE SCLEROSIS
     Route: 048
     Dates: start: 20130812
  2. FLOMAX [Concomitant]
     Active Substance: TAMSULOSIN HYDROCHLORIDE
  3. AUBAGIO [Suspect]
     Active Substance: TERIFLUNOMIDE
     Indication: MULTIPLE SCLEROSIS
     Route: 048
     Dates: start: 20140130, end: 20150115
  4. GABAPENTIN. [Concomitant]
     Active Substance: GABAPENTIN
  5. BACLOFEN. [Concomitant]
     Active Substance: BACLOFEN
  6. OXYBUTYNIN [Concomitant]
     Active Substance: OXYBUTYNIN

REACTIONS (34)
  - Wheelchair user [Unknown]
  - Asthenia [Unknown]
  - Vision blurred [Unknown]
  - Seasonal allergy [Not Recovered/Not Resolved]
  - Insomnia [Unknown]
  - Alopecia [Not Recovered/Not Resolved]
  - Blister [Unknown]
  - Dysphagia [Unknown]
  - Mobility decreased [Recovering/Resolving]
  - Back pain [Unknown]
  - Paraesthesia [Unknown]
  - Motor dysfunction [Unknown]
  - Multiple sclerosis relapse [Not Recovered/Not Resolved]
  - Gait disturbance [Unknown]
  - Activities of daily living impaired [Unknown]
  - Condition aggravated [Unknown]
  - Pain [Unknown]
  - Headache [Unknown]
  - Cough [Not Recovered/Not Resolved]
  - Intervertebral disc degeneration [Unknown]
  - Fall [Unknown]
  - Spinal disorder [Unknown]
  - Joint injury [Unknown]
  - Neuromyopathy [Unknown]
  - Neuralgia [Unknown]
  - Muscle spasms [Unknown]
  - Mobility decreased [Not Recovered/Not Resolved]
  - Dysgraphia [Not Recovered/Not Resolved]
  - Malaise [Not Recovered/Not Resolved]
  - Diarrhoea [Recovered/Resolved]
  - Hypoaesthesia [Unknown]
  - Alopecia [Not Recovered/Not Resolved]
  - Muscular weakness [Unknown]
  - Dry mouth [Unknown]

NARRATIVE: CASE EVENT DATE: 201308
